FAERS Safety Report 22998498 (Version 2)
Quarter: 2024Q1

REPORT INFORMATION
  Report Type: Spontaneous
  Country: CA (occurrence: CA)
  Receive Date: 20230928
  Receipt Date: 20240321
  Transmission Date: 20240409
  Serious: Yes (Other)
  Sender: FDA-Public Use
  Company Number: CA-SANDOZ-SDZ2023CA030863

PATIENT
  Sex: Female

DRUGS (11)
  1. ASPIRIN [Suspect]
     Active Substance: ASPIRIN
     Indication: Product used for unknown indication
     Route: 065
  2. DIAZEPAM [Suspect]
     Active Substance: DIAZEPAM
     Indication: Product used for unknown indication
     Dosage: 1 X 5MG, FREQUENCY DAILY (OD/QD)
     Route: 048
  3. LORAZEPAM [Suspect]
     Active Substance: LORAZEPAM
     Indication: Product used for unknown indication
     Dosage: 1 X 4MG, FREQUENCY DAILY (O.D/Q.D)
     Route: 048
  4. EPIPEN [Concomitant]
     Active Substance: EPINEPHRINE
     Indication: Product used for unknown indication
     Route: 065
  5. GRAVOL [Concomitant]
     Active Substance: DIMENHYDRINATE
     Indication: Product used for unknown indication
     Route: 048
  6. PEPCID [Concomitant]
     Active Substance: FAMOTIDINE
     Indication: Product used for unknown indication
     Dosage: UNK
     Route: 065
  7. PEPCID [Concomitant]
     Active Substance: FAMOTIDINE
     Dosage: UNK
     Route: 065
  8. PERCOCET [Concomitant]
     Active Substance: ACETAMINOPHEN\OXYCODONE HYDROCHLORIDE
     Indication: Product used for unknown indication
     Route: 048
  9. QUERCITIN [Concomitant]
     Indication: Product used for unknown indication
     Dosage: UNK
     Route: 065
  10. QUERCITIN [Concomitant]
     Dosage: UNK
     Route: 065
  11. Reactine [Concomitant]
     Indication: Product used for unknown indication
     Route: 065

REACTIONS (8)
  - Mast cell activation syndrome [Unknown]
  - Hypotension [Unknown]
  - Vomiting [Unknown]
  - Abdominal discomfort [Unknown]
  - Chills [Unknown]
  - Rash pruritic [Unknown]
  - Pituitary tumour benign [Unknown]
  - Postural orthostatic tachycardia syndrome [Unknown]
